FAERS Safety Report 13226562 (Version 1)
Quarter: 2017Q1

REPORT INFORMATION
  Report Type: Spontaneous
  Country: JP (occurrence: JP)
  Receive Date: 20170213
  Receipt Date: 20170213
  Transmission Date: 20170428
  Serious: Yes (Other)
  Sender: FDA-Public Use
  Company Number: JP-BIOCRYST PHARMACEUTICALS, INC.-2017BCR00030

PATIENT
  Age: 73 Year
  Sex: Male

DRUGS (16)
  1. AZOSEMIDE [Concomitant]
     Active Substance: AZOSEMIDE
  2. NEXIUM [Concomitant]
     Active Substance: ESOMEPRAZOLE MAGNESIUM
  3. CRESTOR [Concomitant]
     Active Substance: ROSUVASTATIN CALCIUM
     Route: 048
  4. CLOPIDOGREL [Concomitant]
     Active Substance: CLOPIDOGREL BISULFATE
  5. GLUBES [Concomitant]
     Active Substance: MITIGLINIDE CALCIUM HYDRATE\VOGLIBOSE
  6. WARFARIN [Concomitant]
     Active Substance: WARFARIN
  7. TRAZENTA [Concomitant]
     Active Substance: LINAGLIPTIN
  8. SULBACILLIN [Concomitant]
     Active Substance: AMPICILLIN SODIUM\SULBACTAM SODIUM
  9. HALFDIGOXIN [Concomitant]
     Active Substance: DIGOXIN
  10. DILTIAZEM HYDROCHLORIDE. [Concomitant]
     Active Substance: DILTIAZEM HYDROCHLORIDE
  11. RAPIACTA [Suspect]
     Active Substance: PERAMIVIR
     Indication: INFLUENZA
     Dosage: 300 MG, UNK
     Route: 042
     Dates: start: 20170123, end: 20170123
  12. SOLULACT [Concomitant]
  13. BAYASPIRIN [Concomitant]
     Active Substance: ASPIRIN
  14. ISOSORBIDE. [Concomitant]
     Active Substance: ISOSORBIDE
  15. METFORMIN HYDROCHLORIDE. [Concomitant]
     Active Substance: METFORMIN HYDROCHLORIDE
  16. MERCAZOLE [Concomitant]
     Active Substance: CARBIMAZOLE

REACTIONS (2)
  - Renal impairment [Not Recovered/Not Resolved]
  - Hepatic function abnormal [Not Recovered/Not Resolved]

NARRATIVE: CASE EVENT DATE: 20170123
